FAERS Safety Report 16912566 (Version 1)
Quarter: 2019Q4

REPORT INFORMATION
  Report Type: Report from Study
  Country: US (occurrence: US)
  Receive Date: 20191014
  Receipt Date: 20191014
  Transmission Date: 20200122
  Serious: Yes (Other)
  Sender: FDA-Public Use
  Company Number: US-GLAXOSMITHKLINE-2019-TSO02591-US

PATIENT
  Age: 67 Year
  Sex: Female

DRUGS (1)
  1. NIRAPARIB [Suspect]
     Active Substance: NIRAPARIB
     Indication: OVARIAN CANCER
     Dosage: 300 MG, QD
     Route: 048
     Dates: start: 20190714

REACTIONS (7)
  - Carbohydrate antigen 125 increased [Unknown]
  - Emotional distress [Unknown]
  - Energy increased [Unknown]
  - Nausea [Recovering/Resolving]
  - Recurrent cancer [Unknown]
  - Red blood cell count abnormal [Unknown]
  - Tearfulness [Unknown]

NARRATIVE: CASE EVENT DATE: 201907
